FAERS Safety Report 5126446-4 (Version None)
Quarter: 2006Q4

REPORT INFORMATION
  Report Type: 
  Country: None (occurrence: None)
  Receive Date: 20061010
  Receipt Date: 20060929
  Transmission Date: 20070319
  Serious: Yes (Other)
  Sender: FDA-Public Use
  Company Number: 2006118511

PATIENT
  Age: 78 Year
  Sex: Male

DRUGS (1)
  1. BENADRYL ALLERGY/CONGESTION (DIPHENHYDRAMINE, PSEUDOEPHEDRINE) [Suspect]
     Dosage: ORAL
     Route: 048
     Dates: start: 20030101

REACTIONS (1)
  - LUNG NEOPLASM MALIGNANT [None]
